FAERS Safety Report 6172364-2 (Version None)
Quarter: 2009Q2

REPORT INFORMATION
  Report Type: 
  Country: None (occurrence: None)
  Receive Date: 20090429
  Receipt Date: 20090420
  Transmission Date: 20091009
  Serious: Yes (Hospitalization, Other)
  Sender: FDA-Public Use
  Company Number: PHHY2009JP15117

PATIENT
  Age: 72 Year
  Sex: Male

DRUGS (3)
  1. DIOVAN [Suspect]
     Indication: HYPERTENSION
     Dosage: 160 MG, QD
     Dates: start: 20070226, end: 20090205
  2. ASPIRIN [Concomitant]
     Dosage: 100 MG
     Route: 048
     Dates: start: 20060802, end: 20090205
  3. PANALDINE [Concomitant]
     Dosage: 200 MG
     Route: 048
     Dates: start: 20090228

REACTIONS (3)
  - BLOOD CREATININE INCREASED [None]
  - ELECTROCARDIOGRAM QT PROLONGED [None]
  - HYPERKALAEMIA [None]
